FAERS Safety Report 7757931-4 (Version None)
Quarter: 2011Q3

REPORT INFORMATION
  Report Type: 
  Country: None (occurrence: None)
  Receive Date: 20110919
  Receipt Date: 20110906
  Transmission Date: 20111222
  Serious: Yes (Hospitalization)
  Sender: FDA-Public Use
  Company Number: US-RANBAXY-2011US-48110

PATIENT

DRUGS (2)
  1. QUETIAPINE [Suspect]
     Indication: PRODUCT USED FOR UNKNOWN INDICATION
     Dosage: 7 TABLETS OF 200 MG, ONCE
     Route: 048
     Dates: start: 20110902, end: 20110902
  2. VERAPAMIL [Suspect]
     Indication: PRODUCT USED FOR UNKNOWN INDICATION
     Dosage: 10 TABLETS OF 240 MG, ONCE
     Route: 048
     Dates: start: 20110902, end: 20110902

REACTIONS (2)
  - SUICIDE ATTEMPT [None]
  - DRUG ABUSE [None]
